FAERS Safety Report 6529709-0 (Version None)
Quarter: 2010Q1

REPORT INFORMATION
  Report Type: 
  Country: None (occurrence: None)
  Receive Date: 20100107
  Receipt Date: 20091228
  Transmission Date: 20100710
  Serious: No
  Sender: FDA-Public Use
  Company Number: US-B.I. PHARMACEUTICALS,INC./RIDGEFIELD-2005-BP-21876BP

PATIENT
  Sex: Female

DRUGS (6)
  1. ATROVENT HFA [Suspect]
     Indication: ASTHMA
     Dosage: 8 PUF
     Route: 055
     Dates: start: 20051201
  2. TENORMIN [Concomitant]
  3. ALPRAZOLAM [Concomitant]
  4. PULMICORT [Concomitant]
  5. ASPIRIN [Concomitant]
  6. FLONASE [Concomitant]

REACTIONS (4)
  - BRONCHIAL IRRITATION [None]
  - PRURITUS [None]
  - SENSATION OF FOREIGN BODY [None]
  - THROAT IRRITATION [None]
